FAERS Safety Report 6519985-2 (Version None)
Quarter: 2009Q4

REPORT INFORMATION
  Report Type: 
  Country: None (occurrence: None)
  Receive Date: 20091229
  Receipt Date: 20091217
  Transmission Date: 20100525
  Serious: No
  Sender: FDA-Public Use
  Company Number: US-JNJFOC-20091206255

PATIENT
  Sex: Male
  Weight: 68.04 kg

DRUGS (14)
  1. SANDOZ FENTANYL TRANSDERMAL SYSTEM [Suspect]
     Indication: SPINAL DISORDER
     Dosage: NDC#: 0781-7114-55
     Route: 062
  2. SANDOZ FENTANYL TRANSDERMAL SYSTEM [Suspect]
     Route: 062
  3. SANDOZ FENTANYL TRANSDERMAL SYSTEM [Suspect]
     Indication: INTERVERTEBRAL DISC PROTRUSION
     Dosage: NDC#: 0781-7114-55
     Route: 062
  4. SANDOZ FENTANYL TRANSDERMAL SYSTEM [Suspect]
     Route: 062
  5. SANDOZ FENTANYL TRANSDERMAL SYSTEM [Suspect]
     Indication: PAIN IN EXTREMITY
     Route: 062
  6. SANDOZ FENTANYL TRANSDERMAL SYSTEM [Suspect]
     Dosage: NDC#: 0781-7114-55
     Route: 062
  7. SANDOZ FENTANYL TRANSDERMAL SYSTEM [Suspect]
     Dosage: NDC#: 0781-7114-55
     Route: 062
  8. SANDOZ FENTANYL TRANSDERMAL SYSTEM [Suspect]
     Route: 062
  9. SANDOZ FENTANYL TRANSDERMAL SYSTEM [Suspect]
     Indication: BACK PAIN
     Dosage: NDC#: 0781-7114-55
     Route: 062
  10. SANDOZ FENTANYL TRANSDERMAL SYSTEM [Suspect]
     Route: 062
  11. SANDOZ FENTANYL TRANSDERMAL SYSTEM [Suspect]
     Indication: NECK PAIN
     Dosage: NDC#: 0781-7114-55
     Route: 062
  12. SANDOZ FENTANYL TRANSDERMAL SYSTEM [Suspect]
     Route: 062
  13. PERCOCET [Concomitant]
     Indication: BREAKTHROUGH PAIN
     Dosage: 10.325/TABLET/4 TIMES/DAILY
     Route: 048
  14. XANAX [Concomitant]
     Indication: ANXIETY
     Route: 048

REACTIONS (4)
  - DRUG EFFECT DECREASED [None]
  - DRUG INEFFECTIVE [None]
  - PRODUCT QUALITY ISSUE [None]
  - WRONG TECHNIQUE IN DRUG USAGE PROCESS [None]
